FAERS Safety Report 17611364 (Version 1)
Quarter: 2020Q2

REPORT INFORMATION
  Report Type: Spontaneous
  Country: US (occurrence: US)
  Receive Date: 20200401
  Receipt Date: 20200401
  Transmission Date: 20200713
  Serious: No
  Sender: FDA-Public Use
  Company Number: US-DSJP-DSU-2020-109263

PATIENT

DRUGS (3)
  1. COLESEVELAM HYDROCHLORIDE. [Suspect]
     Active Substance: COLESEVELAM HYDROCHLORIDE
     Indication: ABNORMAL FAECES
     Dosage: 6 DF, QD IN DIVIDED DOSE
     Route: 065
     Dates: start: 20200116, end: 202003
  2. WELCHOL [Suspect]
     Active Substance: COLESEVELAM HYDROCHLORIDE
     Indication: ABNORMAL FAECES
     Dosage: 6 DF, QD IN DIVIDED DOSE
     Route: 065
  3. WELCHOL [Suspect]
     Active Substance: COLESEVELAM HYDROCHLORIDE
     Dosage: 6 DF, QD IN DIVIDED DOSE
     Route: 065
     Dates: start: 20200313

REACTIONS (2)
  - Off label use [Not Recovered/Not Resolved]
  - No adverse event [Not Recovered/Not Resolved]
